FAERS Safety Report 7574391-7 (Version None)
Quarter: 2011Q2

REPORT INFORMATION
  Report Type: 
  Country: None (occurrence: None)
  Receive Date: 20110627
  Receipt Date: 20110125
  Transmission Date: 20111010
  Serious: Yes (Hospitalization)
  Sender: FDA-Public Use
  Company Number: US-BAYER-201032871NA

PATIENT
  Age: 36 Year
  Sex: Female
  Weight: 68.027 kg

DRUGS (2)
  1. YASMIN [Suspect]
     Indication: CONTRACEPTION
     Route: 048
     Dates: start: 20070701, end: 20090501
  2. SYNTHROID [Concomitant]
     Dosage: UNK
     Dates: start: 20030101

REACTIONS (3)
  - CHOLECYSTITIS CHRONIC [None]
  - DYSPEPSIA [None]
  - CHOLELITHIASIS [None]
